FAERS Safety Report 10207403 (Version 1)
Quarter: 2014Q2

REPORT INFORMATION
  Report Type: Spontaneous
  Country: US (occurrence: US)
  Receive Date: 20140530
  Receipt Date: 20140530
  Transmission Date: 20141212
  Serious: No
  Sender: FDA-Public Use
  Company Number: US-GLAXOSMITHKLINE-A1041339A

PATIENT
  Age: 72 Year
  Sex: Male

DRUGS (5)
  1. VENTOLIN [Suspect]
     Indication: ASTHMA
     Dosage: 1SPR VARIABLE DOSE
     Route: 055
     Dates: start: 2011
  2. ASMANEX [Concomitant]
  3. RAPAFLO [Concomitant]
  4. ESCITALOPRAM [Concomitant]
  5. FORADIL [Concomitant]

REACTIONS (1)
  - Inhalation therapy [Unknown]
